FAERS Safety Report 13698015 (Version 1)
Quarter: 2017Q2

REPORT INFORMATION
  Report Type: Other
  Country: IT (occurrence: IT)
  Receive Date: 20170628
  Receipt Date: 20170628
  Transmission Date: 20170830
  Serious: Yes (Other)
  Sender: FDA-Public Use
  Company Number: IT-APOTEX-2017AP013726

PATIENT
  Age: 51 Year
  Sex: Female

DRUGS (2)
  1. INDOMETACIN [Suspect]
     Active Substance: INDOMETHACIN
     Indication: NECK PAIN
     Route: 048
  2. ZOLPIDEM DOC GENERICI [Suspect]
     Active Substance: ZOLPIDEM TARTRATE
     Indication: PRODUCT USED FOR UNKNOWN INDICATION
     Dosage: 0.5 DF, TOTAL
     Route: 048

REACTIONS (2)
  - Sopor [Unknown]
  - Psychomotor retardation [Unknown]

NARRATIVE: CASE EVENT DATE: 20170520
